FAERS Safety Report 19381859 (Version 1)
Quarter: 2021Q2

REPORT INFORMATION
  Report Type: Spontaneous
  Country: US (occurrence: US)
  Receive Date: 20210606
  Receipt Date: 20210606
  Transmission Date: 20210717
  Serious: Yes (Disabling, Other)
  Sender: FDA-Public Use
  Company Number: None

PATIENT
  Age: 20 Year
  Sex: Female
  Weight: 83.7 kg

DRUGS (8)
  1. PROPRANOLOL [Concomitant]
     Active Substance: PROPRANOLOL HYDROCHLORIDE
  2. VITAMIN D3 [Concomitant]
     Active Substance: CHOLECALCIFEROL
  3. NUVARING [Concomitant]
     Active Substance: ETHINYL ESTRADIOL\ETONOGESTREL
  4. BREO ELLIPTA [Concomitant]
     Active Substance: FLUTICASONE FUROATE\VILANTEROL TRIFENATATE
  5. ALBUTEROL INHALER [Concomitant]
     Active Substance: ALBUTEROL
  6. VITAMIN B6 STRESS COMPLEX [Concomitant]
  7. L?METHYLFOLATE CALCIUM [Concomitant]
     Active Substance: LEVOMEFOLATE CALCIUM
  8. PREPARATION H SUPPOSITORY [Suspect]
     Active Substance: COCOA BUTTER\PHENYLEPHRINE HYDROCHLORIDE
     Indication: HAEMORRHOIDS
     Dosage: ?          QUANTITY:1 SUPPOSITORY(IES);?
     Route: 054
     Dates: start: 20210601, end: 20210605

REACTIONS (11)
  - Muscular weakness [None]
  - Panic attack [None]
  - Diarrhoea [None]
  - Chills [None]
  - Hot flush [None]
  - Flatulence [None]
  - Nausea [None]
  - Tremor [None]
  - Vomiting [None]
  - Anxiety [None]
  - Muscle spasms [None]

NARRATIVE: CASE EVENT DATE: 20210605
